FAERS Safety Report 5100524-8 (Version None)
Quarter: 2006Q3

REPORT INFORMATION
  Report Type: 
  Country: None (occurrence: None)
  Receive Date: 20060909
  Receipt Date: 20050902
  Transmission Date: 20061208
  Serious: Yes (Hospitalization)
  Sender: FDA-Public Use
  Company Number: MT-ABBOTT-05P-103-0310262-00

PATIENT
  Age: 27 Year
  Sex: Female

DRUGS (1)
  1. KLACID I.V. [Suspect]
     Indication: FACIAL BONES FRACTURE
     Route: 042
     Dates: start: 20050902

REACTIONS (2)
  - PHLEBITIS [None]
  - THROMBOSIS [None]
